FAERS Safety Report 10447606 (Version 2)
Quarter: 2014Q3

REPORT INFORMATION
  Report Type: Spontaneous
  Country: US (occurrence: US)
  Receive Date: 20140911
  Receipt Date: 20140911
  Transmission Date: 20150326
  Serious: Yes (Hospitalization, Other)
  Sender: FDA-Public Use
  Company Number: PHHY2014US099191

PATIENT
  Age: 57 Year
  Sex: Female

DRUGS (6)
  1. LIORESAL [Suspect]
     Active Substance: BACLOFEN
     Dosage: 960 UG, PER DAY
     Route: 037
  2. LIORESAL [Suspect]
     Active Substance: BACLOFEN
     Dosage: PUMP DOSE WAS INCREASED
     Route: 037
  3. CLONAZEPAM. [Suspect]
     Active Substance: CLONAZEPAM
     Dosage: UNK UKN, UNK
  4. LIORESAL [Suspect]
     Active Substance: BACLOFEN
     Indication: MUSCLE SPASTICITY
     Dosage: 961 UG, PER DAY
     Route: 037
  5. LIORESAL [Suspect]
     Active Substance: BACLOFEN
     Dosage: 100 UG, PER DAY
     Route: 037
  6. LYRICA [Suspect]
     Active Substance: PREGABALIN
     Dosage: UNK UKN, UNK

REACTIONS (22)
  - Renal failure acute [Recovered/Resolved]
  - Muscle spasticity [Unknown]
  - Musculoskeletal stiffness [Unknown]
  - Gait disturbance [Unknown]
  - No therapeutic response [Unknown]
  - Underdose [Unknown]
  - Pruritus [Unknown]
  - Drug withdrawal syndrome [Unknown]
  - Muscle rigidity [Unknown]
  - Mental status changes [Unknown]
  - Headache [Unknown]
  - Toxic encephalopathy [Recovering/Resolving]
  - Blood creatine phosphokinase increased [Recovered/Resolved]
  - Dizziness [Unknown]
  - Nausea [Unknown]
  - Pyrexia [Recovered/Resolved]
  - Vomiting [Unknown]
  - Bronchitis [Unknown]
  - Pneumonitis [Unknown]
  - Unresponsive to stimuli [Unknown]
  - Pain [Unknown]
  - Muscle spasms [Unknown]

NARRATIVE: CASE EVENT DATE: 20140801
